FAERS Safety Report 22160983 (Version 1)
Quarter: 2023Q1

REPORT INFORMATION
  Report Type: Spontaneous
  Country: US (occurrence: None)
  Receive Date: 20230331
  Receipt Date: 20230331
  Transmission Date: 20230418
  Serious: No
  Sender: FDA-Public Use
  Company Number: None

PATIENT
  Age: 61 Year
  Sex: 0

DRUGS (3)
  1. LEVOTHYROXINE [Suspect]
     Active Substance: LEVOTHYROXINE
  2. LEVOTHYROXINE [Concomitant]
     Active Substance: LEVOTHYROXINE
  3. Levothyroxine capsule [Concomitant]

REACTIONS (2)
  - Adverse drug reaction [None]
  - Pruritus [None]
